FAERS Safety Report 18506798 (Version 2)
Quarter: 2020Q4

REPORT INFORMATION
  Report Type: Report from Study
  Country: US (occurrence: US)
  Receive Date: 20201116
  Receipt Date: 20201123
  Transmission Date: 20210114
  Serious: No
  Sender: FDA-Public Use
  Company Number: US-SA-2020SA321100

PATIENT

DRUGS (2)
  1. IMIGLUCERASE [Suspect]
     Active Substance: IMIGLUCERASE
     Dosage: 3600 U, QOW
     Route: 042
     Dates: start: 20150819
  2. IMIGLUCERASE [Suspect]
     Active Substance: IMIGLUCERASE
     Indication: GAUCHER^S DISEASE
     Dosage: 3600 U, QOW
     Route: 042
     Dates: start: 20140408

REACTIONS (1)
  - Exposure during pregnancy [Unknown]
